FAERS Safety Report 5483260-8 (Version None)
Quarter: 2007Q4

REPORT INFORMATION
  Report Type: 
  Country: None (occurrence: None)
  Receive Date: 20071012
  Receipt Date: 20071002
  Transmission Date: 20080405
  Serious: Yes (Other)
  Sender: FDA-Public Use
  Company Number: US-NOVOPROD-267929

PATIENT

DRUGS (2)
  1. VAGIFEM [Suspect]
     Indication: VULVOVAGINAL DRYNESS
     Route: 067
     Dates: start: 20070301
  2. VAGIFEM [Suspect]
     Route: 067
     Dates: start: 20060701, end: 20061101

REACTIONS (1)
  - CARCINOEMBRYONIC ANTIGEN INCREASED [None]
